FAERS Safety Report 9862035 (Version 1)
Quarter: 2014Q1

REPORT INFORMATION
  Report Type: Spontaneous
  Country: US (occurrence: US)
  Receive Date: 20140203
  Receipt Date: 20140203
  Transmission Date: 20141002
  Serious: No
  Sender: FDA-Public Use
  Company Number: US-B.I. PHARMACEUTICALS,INC./RIDGEFIELD-2014-BI-04248BP

PATIENT
  Age: 61 Year
  Sex: Male

DRUGS (1)
  1. TRADJENTA [Suspect]
     Indication: DIABETES MELLITUS MANAGEMENT
     Dosage: 5 MG
     Route: 048
     Dates: start: 201309

REACTIONS (1)
  - Drug ineffective [Not Recovered/Not Resolved]
